FAERS Safety Report 9054781 (Version 4)
Quarter: 2013Q3

REPORT INFORMATION
  Report Type: Spontaneous
  Country: DK (occurrence: DK)
  Receive Date: 20130208
  Receipt Date: 20130711
  Transmission Date: 20140515
  Serious: Yes (Disabling)
  Sender: FDA-Public Use
  Company Number: DK-ABBOTT-13P-044-1045092-00

PATIENT
  Age: 63 Year
  Sex: Female
  Weight: 40 kg

DRUGS (9)
  1. HUMIRA [Suspect]
     Indication: CROHN^S DISEASE
     Dates: start: 20111214
  2. IMUREL [Concomitant]
     Indication: CROHN^S DISEASE
  3. TRADOLAN [Concomitant]
     Indication: PAIN
  4. CLOPIGREL [Concomitant]
     Indication: CARDIAC DISORDER
  5. SIMVASTATIN [Concomitant]
     Indication: PRODUCT USED FOR UNKNOWN INDICATION
  6. PINEX [Concomitant]
     Indication: PRODUCT USED FOR UNKNOWN INDICATION
  7. GABAPENTIN [Concomitant]
     Indication: PRODUCT USED FOR UNKNOWN INDICATION
  8. IMOCLONE [Concomitant]
     Indication: SLEEP DISORDER
  9. SYMBICORT TURBOHALER (FORMOTEROL FUMARATE DIHYDRATE) [Concomitant]
     Indication: CHRONIC OBSTRUCTIVE PULMONARY DISEASE

REACTIONS (6)
  - Tooth fracture [Recovered/Resolved]
  - Tooth fracture [Recovered/Resolved]
  - Teeth brittle [Recovered/Resolved]
  - Dental caries [Unknown]
  - Toothache [Unknown]
  - Phobia [Unknown]
